FAERS Safety Report 9754394 (Version 3)
Quarter: 2013Q4

REPORT INFORMATION
  Report Type: Report from Study
  Country: GB (occurrence: GB)
  Receive Date: 20131213
  Receipt Date: 20131223
  Transmission Date: 20140711
  Serious: Yes (Hospitalization, Other)
  Sender: FDA-Public Use
  Company Number: GB-GILEAD-2013-0086819

PATIENT
  Age: 45 Year
  Sex: Male

DRUGS (5)
  1. SOFOSBUVIR [Suspect]
     Indication: HEPATITIS C
     Dosage: 400 MG, QD
     Route: 048
  2. RIBAVIRIN [Suspect]
     Indication: HEPATITIS C
     Dosage: 600 MG, QD
     Route: 048
  3. PEGINTERFERON [Suspect]
     Indication: HEPATITIS C
  4. PROGRAF [Concomitant]
     Dosage: UNK
  5. NOVOMIX [Concomitant]
     Dosage: UNK

REACTIONS (1)
  - Peritonitis bacterial [Recovered/Resolved]
